FAERS Safety Report 9556313 (Version 6)
Quarter: 2013Q4

REPORT INFORMATION
  Report Type: Report from Study
  Country: US (occurrence: US)
  Receive Date: 20130926
  Receipt Date: 20131216
  Transmission Date: 20140711
  Serious: No
  Sender: FDA-Public Use
  Company Number: US-VERTEX PHARMACEUTICALS INC-2013-009889

PATIENT
  Age: 44 Year
  Sex: Male
  Weight: 99.77 kg

DRUGS (3)
  1. VX-950 (TELAPREVIR) [Suspect]
     Indication: HEPATITIS C
     Dosage: 750 MG, TID
     Route: 048
     Dates: start: 20130923
  2. RIBAVIRIN [Suspect]
     Indication: HEPATITIS C
     Dosage: 600 MG, BID
     Route: 048
     Dates: start: 20130923
  3. PEGASYS [Suspect]
     Indication: HEPATITIS C
     Dosage: 180 ?G, QW
     Route: 058
     Dates: start: 20130923

REACTIONS (26)
  - Headache [Not Recovered/Not Resolved]
  - Photophobia [Not Recovered/Not Resolved]
  - Malaise [Recovered/Resolved]
  - Chills [Unknown]
  - Injection site pruritus [Recovered/Resolved]
  - Alopecia [Unknown]
  - Balance disorder [Unknown]
  - Dizziness [Not Recovered/Not Resolved]
  - Bedridden [Recovered/Resolved]
  - Disorientation [Recovered/Resolved]
  - Hot flush [Recovered/Resolved]
  - Decreased appetite [Not Recovered/Not Resolved]
  - Insomnia [Unknown]
  - Hepatic pain [Not Recovered/Not Resolved]
  - Gingival bleeding [Not Recovered/Not Resolved]
  - Mouth ulceration [Not Recovered/Not Resolved]
  - Eating disorder [Not Recovered/Not Resolved]
  - Pyrexia [Recovered/Resolved]
  - Hypoaesthesia [Not Recovered/Not Resolved]
  - Hypersomnia [Recovered/Resolved]
  - Loose tooth [Not Recovered/Not Resolved]
  - Fatigue [Not Recovered/Not Resolved]
  - Anorectal discomfort [Not Recovered/Not Resolved]
  - Rash pruritic [Not Recovered/Not Resolved]
  - Rectal haemorrhage [Not Recovered/Not Resolved]
  - Anaemia [Not Recovered/Not Resolved]
